FAERS Safety Report 9500036 (Version 1)
Quarter: 2013Q1

REPORT INFORMATION
  Report Type: Spontaneous
  Country: US (occurrence: None)
  Receive Date: 20130129
  Receipt Date: 20130129
  Transmission Date: 20140127
  Serious: Yes (Hospitalization)
  Sender: FDA-Public Use
  Company Number: 1000026534

PATIENT
  Age: 58 Year
  Sex: Male

DRUGS (1)
  1. BYSTOLIC [Suspect]
     Dates: start: 201111, end: 201111

REACTIONS (1)
  - Overdose [None]
